FAERS Safety Report 15546688 (Version 4)
Quarter: 2020Q1

REPORT INFORMATION
  Report Type: Spontaneous
  Country: FR (occurrence: FR)
  Receive Date: 20181024
  Receipt Date: 20200109
  Transmission Date: 20200409
  Serious: Yes (Hospitalization, Other)
  Sender: FDA-Public Use
  Company Number: FR-PFIZER INC-2018425500

PATIENT
  Age: 24 Year
  Sex: Female
  Weight: 55 kg

DRUGS (10)
  1. THERALENE [Suspect]
     Active Substance: TRIMEPRAZINE
     Indication: MENTAL DISORDER
     Dosage: 30 GTT 1X/DAY
     Route: 048
     Dates: start: 20180822, end: 20180822
  2. VALIUM [Suspect]
     Active Substance: DIAZEPAM
     Indication: MENTAL DISORDER
     Dosage: 20 MG 1X/DAY
     Route: 048
     Dates: start: 20180905, end: 20180914
  3. LOXAPAC [LOXAPINE SUCCINATE] [Suspect]
     Active Substance: LOXAPINE SUCCINATE
     Indication: MENTAL DISORDER
     Dosage: 4 MG 1X/DAY
     Route: 048
     Dates: start: 20180822, end: 20180909
  4. FUCIDINE [FUSIDATE SODIUM] [Concomitant]
     Active Substance: FUSIDATE SODIUM
     Indication: SKIN INFECTION
     Dosage: 1 DF, 1X/DAY
     Route: 003
     Dates: start: 20180905, end: 20180911
  5. ADEPAL [Suspect]
     Active Substance: ETHINYL ESTRADIOL\LEVONORGESTREL
     Indication: CONTRACEPTION
     Dosage: 21 DF MONTHLY
     Route: 048
     Dates: start: 20180829, end: 20180913
  6. LORAZEPAM. [Suspect]
     Active Substance: LORAZEPAM
     Indication: MENTAL DISORDER
     Dosage: 75 MG 1X/DAY
     Route: 048
     Dates: start: 20180907, end: 20180914
  7. MOVICOL [Suspect]
     Active Substance: POLYETHYLENE GLYCOL 3350\POTASSIUM CHLORIDE\SODIUM BICARBONATE\SODIUM CHLORIDE
     Indication: CONSTIPATION
     Dosage: 1 DF 1X/DAY
     Route: 048
     Dates: start: 20180822, end: 20180914
  8. CLOPIXOL [Suspect]
     Active Substance: ZUCLOPENTHIXOL
     Indication: MENTAL DISORDER
     Dosage: 25 MG 1X/DAY
     Route: 048
     Dates: start: 20180822, end: 20180911
  9. LEPTICUR [Suspect]
     Active Substance: TROPATEPINE HYDROCHLORIDE
     Indication: MENTAL DISORDER
     Dosage: 10 MG 1X/DAY
     Route: 048
     Dates: start: 20180822, end: 20180914
  10. FLUOXETINE HYDROCHLORIDE. [Suspect]
     Active Substance: FLUOXETINE HYDROCHLORIDE
     Indication: MENTAL DISORDER
     Dosage: 120 MG, 1X/DAY
     Route: 048
     Dates: start: 20180822, end: 20180914

REACTIONS (1)
  - Hepatitis acute [Recovered/Resolved]

NARRATIVE: CASE EVENT DATE: 20180909
